FAERS Safety Report 19258124 (Version 1)
Quarter: 2021Q2

REPORT INFORMATION
  Report Type: Spontaneous
  Country: US (occurrence: US)
  Receive Date: 20210514
  Receipt Date: 20210514
  Transmission Date: 20210717
  Serious: Yes (Other)
  Sender: FDA-Public Use
  Company Number: None

PATIENT
  Age: 54 Year
  Sex: Female
  Weight: 118.3 kg

DRUGS (1)
  1. TRUXIMA [Suspect]
     Active Substance: RITUXIMAB-ABBS
     Indication: RHEUMATOID ARTHRITIS
     Route: 041
     Dates: start: 20210513

REACTIONS (3)
  - Pruritus [None]
  - Infusion related reaction [None]
  - Urticaria [None]

NARRATIVE: CASE EVENT DATE: 20210513
